FAERS Safety Report 16069053 (Version 1)
Quarter: 2019Q1

REPORT INFORMATION
  Report Type: Report from Study
  Country: US (occurrence: US)
  Receive Date: 20190313
  Receipt Date: 20190313
  Transmission Date: 20190418
  Serious: Yes (Other)
  Sender: FDA-Public Use
  Company Number: US-ACTELION-A-NJ2019-187137

PATIENT
  Age: 52 Year
  Sex: Male

DRUGS (1)
  1. OPSUMIT [Suspect]
     Active Substance: MACITENTAN
     Indication: PRODUCT USED FOR UNKNOWN INDICATION
     Dosage: 10 MG, QD
     Route: 048
     Dates: start: 20181116, end: 20190222

REACTIONS (4)
  - Procedural hypotension [Unknown]
  - Adverse event [Not Recovered/Not Resolved]
  - Liver injury [Unknown]
  - Haemodialysis [Unknown]

NARRATIVE: CASE EVENT DATE: 201902
